FAERS Safety Report 5966447-7 (Version None)
Quarter: 2008Q4

REPORT INFORMATION
  Report Type: 
  Country: None (occurrence: None)
  Receive Date: 20081125
  Receipt Date: 20081001
  Transmission Date: 20090506
  Serious: No
  Sender: FDA-Public Use
  Company Number: US-AMGEN-KDL308966

PATIENT
  Sex: Female

DRUGS (1)
  1. ENBREL [Suspect]
     Indication: RHEUMATOID ARTHRITIS
     Route: 058

REACTIONS (15)
  - ALOPECIA [None]
  - CRYING [None]
  - DIZZINESS [None]
  - DRY MOUTH [None]
  - EMOTIONAL DISTRESS [None]
  - FOAMING AT MOUTH [None]
  - HEADACHE [None]
  - NAUSEA [None]
  - ORAL DISORDER [None]
  - ORAL PAIN [None]
  - PURULENT DISCHARGE [None]
  - PYREXIA [None]
  - SCREAMING [None]
  - SKIN PAPILLOMA [None]
  - VISUAL IMPAIRMENT [None]
